FAERS Safety Report 25871224 (Version 2)
Quarter: 2025Q4

REPORT INFORMATION
  Report Type: Spontaneous
  Country: EU (occurrence: EU)
  Receive Date: 20251001
  Receipt Date: 20251006
  Transmission Date: 20260117
  Serious: Yes (Death, Other)
  Sender: GILEAD
  Company Number: EU-GILEAD-2025-0730738

PATIENT

DRUGS (1)
  1. YESCARTA [Suspect]
     Active Substance: AXICABTAGENE CILOLEUCEL
     Indication: Product use in unapproved indication
     Dosage: UNK
     Route: 065
     Dates: start: 20250920, end: 20250920

REACTIONS (2)
  - Disease progression [Fatal]
  - Cytokine release syndrome [Unknown]
